FAERS Safety Report 10040742 (Version 1)
Quarter: 2014Q1

REPORT INFORMATION
  Report Type: Report from Study
  Country: CA (occurrence: CA)
  Receive Date: 20140327
  Receipt Date: 20140327
  Transmission Date: 20141002
  Serious: Yes (Other)
  Sender: FDA-Public Use
  Company Number: CA-JNJFOC-20140307149

PATIENT
  Age: 68 Year
  Sex: Male
  Weight: 85 kg

DRUGS (13)
  1. REMICADE [Suspect]
     Indication: ANKYLOSING SPONDYLITIS
     Route: 042
     Dates: start: 20140319
  2. REMICADE [Suspect]
     Indication: ANKYLOSING SPONDYLITIS
     Route: 042
     Dates: start: 20080904
  3. REMICADE [Suspect]
     Indication: CROHN^S DISEASE
     Route: 042
     Dates: start: 20140319
  4. REMICADE [Suspect]
     Indication: CROHN^S DISEASE
     Route: 042
     Dates: start: 20080904
  5. IMURAN [Concomitant]
     Route: 065
  6. SYNTHROID [Concomitant]
     Route: 065
  7. ZOPICLONE [Concomitant]
     Route: 065
  8. VIAGRA [Concomitant]
     Route: 065
  9. OMEPRAZOLE [Concomitant]
     Route: 065
  10. PREDNISONE [Concomitant]
     Route: 065
  11. ALTACE [Concomitant]
     Route: 065
  12. FOSAMAX [Concomitant]
     Route: 065
  13. ADALAT XL [Concomitant]
     Route: 065

REACTIONS (1)
  - Tendon disorder [Not Recovered/Not Resolved]
